FAERS Safety Report 25018762 (Version 1)
Quarter: 2025Q1

REPORT INFORMATION
  Report Type: Spontaneous
  Country: US (occurrence: US)
  Receive Date: 20250227
  Receipt Date: 20250227
  Transmission Date: 20250409
  Serious: No
  Sender: AVADEL CNS PHARMACEUTICALS, LLC
  Company Number: US-AVADEL CNS PHARMACEUTICALS, LLC-2024AVA02457

PATIENT
  Sex: Female
  Weight: 49.433 kg

DRUGS (16)
  1. LUMRYZ [Suspect]
     Active Substance: SODIUM OXYBATE
     Indication: Narcolepsy
     Dosage: 4.5 G, ONCE NIGHTLY
     Dates: start: 20241129, end: 20241222
  2. LUMRYZ [Suspect]
     Active Substance: SODIUM OXYBATE
     Indication: Cataplexy
  3. MAGNESIUM [Concomitant]
     Active Substance: MAGNESIUM
  4. ZYRTEC [Concomitant]
     Active Substance: CETIRIZINE HYDROCHLORIDE
  5. ELETRIPTAN HYDROBROMIDE [Concomitant]
     Active Substance: ELETRIPTAN HYDROBROMIDE
  6. LINZESS [Concomitant]
     Active Substance: LINACLOTIDE
  7. BOTOX [Concomitant]
     Active Substance: ONABOTULINUMTOXINA
  8. ONDANSETRON HYDROCHLORIDE [Concomitant]
     Active Substance: ONDANSETRON HYDROCHLORIDE
  9. VYEPTI [Concomitant]
     Active Substance: EPTINEZUMAB-JJMR
  10. RIBOFLAVIN [Concomitant]
     Active Substance: RIBOFLAVIN
  11. RESTASIS [Concomitant]
     Active Substance: CYCLOSPORINE
  12. NORTRIPTYLINE HYDROCHLORIDE [Concomitant]
     Active Substance: NORTRIPTYLINE HYDROCHLORIDE
  13. MODAFINIL [Concomitant]
     Active Substance: MODAFINIL
  14. MELOXICAM [Concomitant]
     Active Substance: MELOXICAM
  15. MAGNESIUM OXIDE [Concomitant]
     Active Substance: MAGNESIUM OXIDE
  16. NIKKI [Concomitant]
     Active Substance: DROSPIRENONE\ETHINYL ESTRADIOL

REACTIONS (9)
  - Thirst [Not Recovered/Not Resolved]
  - Terminal insomnia [Not Recovered/Not Resolved]
  - Palpitations [Not Recovered/Not Resolved]
  - Malaise [Unknown]
  - Depression [Unknown]
  - Headache [Not Recovered/Not Resolved]
  - Nausea [Not Recovered/Not Resolved]
  - Anxiety [Unknown]
  - Panic attack [Unknown]

NARRATIVE: CASE EVENT DATE: 20240101
